APPROVED DRUG PRODUCT: EXELDERM
Active Ingredient: SULCONAZOLE NITRATE
Strength: 1%
Dosage Form/Route: SOLUTION;TOPICAL
Application: N018738 | Product #001
Applicant: JOURNEY MEDICAL CORP
Approved: Aug 30, 1985 | RLD: Yes | RS: Yes | Type: RX